FAERS Safety Report 4721734-5 (Version None)
Quarter: 2005Q3

REPORT INFORMATION
  Report Type: 
  Country: None (occurrence: None)
  Receive Date: 20050721
  Receipt Date: 20050322
  Transmission Date: 20060218
  Serious: No
  Sender: FDA-Public Use
  Company Number: US-BRISTOL-MYERS SQUIBB COMPANY-12906228

PATIENT
  Age: 84 Year
  Sex: Female
  Weight: 61 kg

DRUGS (3)
  1. COUMADIN [Suspect]
     Indication: CARDIAC PACEMAKER INSERTION
     Dosage: 5 MG MON-WED-FRI AND 1.5 MG TUES-THURS-SAT AND SUN
     Route: 048
     Dates: start: 20041201
  2. HYZAAR [Concomitant]
  3. LEXAPRO [Concomitant]

REACTIONS (1)
  - COLD SWEAT [None]
